FAERS Safety Report 10523498 (Version 1)
Quarter: 2014Q4

REPORT INFORMATION
  Report Type: Spontaneous
  Country: IN (occurrence: IN)
  Receive Date: 20141017
  Receipt Date: 20141017
  Transmission Date: 20150528
  Serious: Yes (Death, Other)
  Sender: FDA-Public Use
  Company Number: IN-ACCORD-026350

PATIENT
  Age: 37 Year
  Sex: Male

DRUGS (1)
  1. METHOTREXATE [Suspect]
     Active Substance: METHOTREXATE
     Indication: PRODUCT USED FOR UNKNOWN INDICATION
     Route: 048

REACTIONS (9)
  - Mouth ulceration [Unknown]
  - Psoriasis [Unknown]
  - Bone marrow failure [Unknown]
  - Renal impairment [Not Recovered/Not Resolved]
  - Odynophagia [Unknown]
  - Toxicity to various agents [Fatal]
  - Tenderness [Unknown]
  - Erythema [Unknown]
  - Pyrexia [Unknown]
